FAERS Safety Report 9761517 (Version 3)
Quarter: 2014Q2

REPORT INFORMATION
  Report Type: Spontaneous
  Country: US (occurrence: US)
  Receive Date: 20131216
  Receipt Date: 20140421
  Transmission Date: 20141212
  Serious: No
  Sender: FDA-Public Use
  Company Number: US-BIOGENIDEC-2013BI109224

PATIENT
  Age: 76 Year
  Sex: Female

DRUGS (6)
  1. TECFIDERA [Suspect]
     Indication: MULTIPLE SCLEROSIS
     Route: 048
     Dates: start: 20131004
  2. TECFIDERA [Suspect]
     Indication: MULTIPLE SCLEROSIS
     Route: 048
     Dates: start: 20131028
  3. TECFIDERA [Suspect]
     Indication: MULTIPLE SCLEROSIS
     Route: 048
     Dates: start: 201311
  4. AMPYRA [Concomitant]
  5. AMANTADINE [Concomitant]
  6. BACLOFEN [Concomitant]

REACTIONS (4)
  - Alopecia [Unknown]
  - Swelling face [Unknown]
  - Swelling [Not Recovered/Not Resolved]
  - Urinary tract infection [Unknown]
